FAERS Safety Report 19886962 (Version 2)
Quarter: 2022Q4

REPORT INFORMATION
  Report Type: Spontaneous
  Country: JP (occurrence: JP)
  Receive Date: 20210928
  Receipt Date: 20221219
  Transmission Date: 20230113
  Serious: Yes (Death, Hospitalization)
  Sender: FDA-Public Use
  Company Number: JP-MTPC-MTPC2021-0023237

PATIENT
  Age: 78 Year
  Sex: Female

DRUGS (3)
  1. EDARAVONE [Suspect]
     Active Substance: EDARAVONE
     Indication: Cerebral infarction
     Route: 041
  2. OZAGREL SODIUM [Concomitant]
     Active Substance: OZAGREL SODIUM
     Route: 065
  3. OPDIVO [Concomitant]
     Active Substance: NIVOLUMAB
     Route: 065

REACTIONS (2)
  - Arrhythmia [Unknown]
  - Platelet count decreased [Fatal]
